FAERS Safety Report 9019682 (Version 2)
Quarter: 2013Q1

REPORT INFORMATION
  Report Type: Report from Study
  Country: CA (occurrence: CA)
  Receive Date: 20130118
  Receipt Date: 20130122
  Transmission Date: 20140127
  Serious: Yes (Other)
  Sender: FDA-Public Use
  Company Number: CA-ROCHE-1179648

PATIENT
  Sex: Female
  Weight: 69 kg

DRUGS (5)
  1. ACTEMRA [Suspect]
     Indication: RHEUMATOID ARTHRITIS
     Route: 042
     Dates: start: 20120912
  2. ACTEMRA [Suspect]
     Route: 042
     Dates: start: 20121012, end: 20121205
  3. PREDNISONE [Concomitant]
  4. TYLENOL #3 (UNITED STATES) [Concomitant]
  5. VITAMIN B12 [Concomitant]

REACTIONS (3)
  - Parotitis [Not Recovered/Not Resolved]
  - Sinusitis [Recovered/Resolved]
  - Infection [Recovered/Resolved]
